FAERS Safety Report 6328054-6 (Version None)
Quarter: 2009Q3

REPORT INFORMATION
  Report Type: 
  Country: None (occurrence: None)
  Receive Date: 20090825
  Receipt Date: 20080806
  Transmission Date: 20100115
  Serious: No
  Sender: FDA-Public Use
  Company Number: US-ABBOTT-08P-163-0472497-00

PATIENT
  Sex: Male
  Weight: 63.56 kg

DRUGS (7)
  1. SYNTHROID [Suspect]
     Indication: HYPOTHYROIDISM
     Dosage: 1/2 TABLET PER DAY
     Route: 048
     Dates: start: 20080805
  2. CETIRIZINE HYDROCHLORIDE [Concomitant]
     Indication: HYPERSENSITIVITY
     Route: 048
  3. DIOVAN HCT [Concomitant]
     Indication: BLOOD PRESSURE
     Route: 048
  4. NISOLDIPINE [Concomitant]
     Indication: BLOOD PRESSURE
     Route: 048
  5. METOPROLOL [Concomitant]
     Indication: BLOOD PRESSURE
     Route: 048
  6. ESOMEPRAZOLE MAGNESIUM [Concomitant]
     Indication: ABDOMINAL DISCOMFORT
     Route: 048
  7. ATORVASTATIN CALCIUM [Concomitant]
     Indication: BLOOD CHOLESTEROL
     Route: 048

REACTIONS (1)
  - FLUSHING [None]
